FAERS Safety Report 13090598 (Version 3)
Quarter: 2017Q2

REPORT INFORMATION
  Report Type: Report from Study
  Country: FR (occurrence: FR)
  Receive Date: 20170105
  Receipt Date: 20170531
  Transmission Date: 20170830
  Serious: Yes (Death, Other)
  Sender: FDA-Public Use
  Company Number: FR-GILEAD-2016-0196492

PATIENT
  Age: 54 Year
  Sex: Male
  Weight: 83 kg

DRUGS (15)
  1. PLAVIX [Concomitant]
     Active Substance: CLOPIDOGREL BISULFATE
  2. VIREAD [Suspect]
     Active Substance: TENOFOVIR DISOPROXIL FUMARATE
     Indication: HIV INFECTION
     Dosage: UNK
     Route: 065
     Dates: start: 20150312, end: 20150818
  3. APROVEL [Concomitant]
     Active Substance: IRBESARTAN
  4. KARDEGIC [Concomitant]
     Active Substance: ASPIRIN LYSINE
  5. ELVITEGRAVIR/COBICISTAT/EMTRICITABINE/TENOFOVIR ALAFENAMIDE [Suspect]
     Active Substance: COBICISTAT\ELVITEGRAVIR\EMTRICITABINE\TENOFOVIR
     Indication: HIV INFECTION
     Dosage: UNK
     Route: 048
     Dates: start: 20150818, end: 20161221
  6. INEXIUM                            /01479302/ [Concomitant]
     Active Substance: ESOMEPRAZOLE MAGNESIUM
  7. CARDENSIEL [Concomitant]
     Active Substance: BISOPROLOL FUMARATE
  8. PRAVASTATIN. [Concomitant]
     Active Substance: PRAVASTATIN
  9. BICARBONATE [Concomitant]
     Active Substance: BICARBONATE ION
  10. VALDOXAN [Concomitant]
     Active Substance: AGOMELATINE
  11. PREZISTA [Concomitant]
     Active Substance: DARUNAVIR ETHANOLATE
     Dosage: 800 UNK, UNK
     Route: 048
     Dates: start: 20151217, end: 20161221
  12. RIVOTRIL [Concomitant]
     Active Substance: CLONAZEPAM
  13. DARUNAVIR W/RITONAVIR [Concomitant]
     Active Substance: DARUNAVIR\RITONAVIR
  14. AMLOR [Concomitant]
     Active Substance: AMLODIPINE BESYLATE
  15. BARACLUDE [Concomitant]
     Active Substance: ENTECAVIR
     Dosage: UNK
     Dates: start: 20150423, end: 20161221

REACTIONS (2)
  - Off label use [Recovered/Resolved]
  - Cardio-respiratory arrest [Fatal]

NARRATIVE: CASE EVENT DATE: 20161221
